FAERS Safety Report 14140521 (Version 1)
Quarter: 2017Q4

REPORT INFORMATION
  Report Type: Spontaneous
  Country: US (occurrence: US)
  Receive Date: 20171030
  Receipt Date: 20171030
  Transmission Date: 20180321
  Serious: No
  Sender: FDA-Public Use
  Company Number: US-PFIZER INC-2017463443

PATIENT
  Age: 70 Year
  Sex: Female
  Weight: 82.55 kg

DRUGS (2)
  1. IBRANCE [Suspect]
     Active Substance: PALBOCICLIB
     Indication: BREAST CANCER METASTATIC
     Dosage: 125 MG,BEFORE MEAL IN THE MORNING, 21 CAPSULES THEN I AM OFF SEVEN DAYS
     Route: 048
     Dates: start: 201701, end: 20171025
  2. XGEVA [Concomitant]
     Active Substance: DENOSUMAB
     Indication: BONE DISORDER
     Dosage: ONCE A MONTH

REACTIONS (1)
  - Neoplasm progression [Unknown]
